FAERS Safety Report 18312409 (Version 1)
Quarter: 2020Q3

REPORT INFORMATION
  Report Type: Spontaneous
  Country: US (occurrence: US)
  Receive Date: 20200925
  Receipt Date: 20200925
  Transmission Date: 20201103
  Serious: Yes (Other)
  Sender: FDA-Public Use
  Company Number: US-AMGEN-USASP2020151211

PATIENT
  Sex: Female

DRUGS (1)
  1. PROLIA [Suspect]
     Active Substance: DENOSUMAB
     Indication: OSTEOPOROSIS POSTMENOPAUSAL
     Dosage: UNK
     Route: 065
     Dates: start: 202009

REACTIONS (8)
  - Nausea [Unknown]
  - Arthritis [Unknown]
  - Dry eye [Unknown]
  - Vomiting [Unknown]
  - Rheumatoid arthritis [Unknown]
  - Salivary hypersecretion [Unknown]
  - Dry mouth [Unknown]
  - Psoriatic arthropathy [Unknown]

NARRATIVE: CASE EVENT DATE: 202009
